FAERS Safety Report 6822954-6 (Version None)
Quarter: 2010Q3

REPORT INFORMATION
  Report Type: 
  Country: None (occurrence: None)
  Receive Date: 20100708
  Receipt Date: 20100702
  Transmission Date: 20110219
  Serious: Yes (Hospitalization)
  Sender: FDA-Public Use
  Company Number: A0854853B

PATIENT
  Age: 54 Year
  Sex: Female

DRUGS (5)
  1. LAPATINIB [Suspect]
     Indication: NEOPLASM
     Dosage: 1250MG PER DAY
     Route: 048
     Dates: start: 20100331
  2. DOCETAXEL [Suspect]
     Indication: NEOPLASM
     Dosage: 75MGM2 PER DAY
     Route: 042
     Dates: start: 20100407
  3. DILAUDID [Concomitant]
     Indication: PAIN
     Dosage: 2MG AS REQUIRED
     Route: 042
     Dates: start: 20100616, end: 20100620
  4. LOVENOX [Concomitant]
     Indication: THROMBOSIS PROPHYLAXIS
     Dosage: 40MG PER DAY
     Route: 058
     Dates: start: 20100616, end: 20100620
  5. INSULIN [Concomitant]
     Indication: HYPERGLYCAEMIA
     Dosage: 3UNIT AS REQUIRED
     Route: 058
     Dates: start: 20100617, end: 20100620

REACTIONS (9)
  - ASTHENIA [None]
  - BLOOD GLUCOSE INCREASED [None]
  - DEHYDRATION [None]
  - DIARRHOEA [None]
  - DIZZINESS [None]
  - FAILURE TO THRIVE [None]
  - GASTROENTERITIS [None]
  - PYREXIA [None]
  - VOMITING [None]
